FAERS Safety Report 4955804-3 (Version None)
Quarter: 2006Q1

REPORT INFORMATION
  Report Type: 
  Country: None (occurrence: None)
  Receive Date: 20060327
  Receipt Date: 20060327
  Transmission Date: 20060701
  Serious: No
  Sender: FDA-Public Use
  Company Number: None

PATIENT
  Age: 44 Year
  Sex: Female
  Weight: 51.7101 kg

DRUGS (2)
  1. TEQUIN [Suspect]
     Indication: SINUSITIS
     Dosage: 400MG   1X DAILY-10 DAYS  PO
     Route: 048
     Dates: start: 20060310, end: 20060315
  2. TEQUIN [Suspect]
     Indication: THERAPY NON-RESPONDER
     Dosage: 400MG   1X DAILY-10 DAYS  PO
     Route: 048
     Dates: start: 20060310, end: 20060315

REACTIONS (6)
  - FLUID INTAKE REDUCED [None]
  - GLOSSODYNIA [None]
  - ORAL INTAKE REDUCED [None]
  - SWOLLEN TONGUE [None]
  - TONGUE DISORDER [None]
  - WEIGHT DECREASED [None]
